FAERS Safety Report 21806815 (Version 2)
Quarter: 2023Q1

REPORT INFORMATION
  Report Type: Spontaneous
  Country: JP (occurrence: None)
  Receive Date: 20230102
  Receipt Date: 20230214
  Transmission Date: 20230418
  Serious: Yes (Death, Other)
  Sender: FDA-Public Use
  Company Number: 2022A420328

PATIENT
  Age: 77 Year
  Sex: Male
  Weight: 46 kg

DRUGS (8)
  1. ONDEXXYA [Suspect]
     Active Substance: ANDEXANET ALFA
     Indication: Thalamus haemorrhage
     Dosage: SEE NARRATIVE
     Route: 042
     Dates: start: 20221114
  2. PROSTANDIN [Concomitant]
     Dosage: DOSE UNKNOWN
     Route: 062
  3. LOXOPROFEN SODIUM [Concomitant]
     Active Substance: LOXOPROFEN SODIUM
     Dosage: DOSE UNKNOWN
     Route: 048
  4. REBAMIPIDE [Concomitant]
     Active Substance: REBAMIPIDE
     Dosage: DOSE UNKNOWN
     Route: 048
  5. EDOXABAN TOSYLATE [Concomitant]
     Active Substance: EDOXABAN TOSYLATE
     Dosage: DOSE UNKNOWN
     Route: 048
  6. OLMESARTAN MEDOXOMIL [Concomitant]
     Active Substance: OLMESARTAN MEDOXOMIL
     Dosage: DOSE UNKNOWN
     Route: 048
  7. BELSOMRA [Concomitant]
     Active Substance: SUVOREXANT
     Dosage: DOSE UNKNOWN
     Route: 048
  8. GLYCERIN [Concomitant]
     Active Substance: GLYCERIN
     Dosage: DOSE UNKNOWN
     Route: 041
     Dates: start: 20221116

REACTIONS (8)
  - Subclavian artery occlusion [Fatal]
  - Septic shock [Fatal]
  - Acute kidney injury [Fatal]
  - Multiple organ dysfunction syndrome [Fatal]
  - Atrial fibrillation [Fatal]
  - Peripheral circulatory failure [Fatal]
  - Necrosis [Fatal]
  - Infection [Fatal]

NARRATIVE: CASE EVENT DATE: 20221115
